FAERS Safety Report 11457094 (Version 2)
Quarter: 2015Q3

REPORT INFORMATION
  Report Type: Spontaneous
  Country: US (occurrence: US)
  Receive Date: 20150904
  Receipt Date: 20150909
  Transmission Date: 20151125
  Serious: No
  Sender: FDA-Public Use
  Company Number: US-009507513-1508USA013016

PATIENT
  Sex: Male

DRUGS (1)
  1. RAGWITEK [Suspect]
     Active Substance: AMBROSIA ARTEMISIIFOLIA POLLEN
     Indication: SEASONAL ALLERGY
     Dosage: 12 AMB/ ONCE DAILY; STRENGTH: 12 AMB A1-U
     Route: 048

REACTIONS (2)
  - Dyspnoea [Recovered/Resolved]
  - Incorrect route of drug administration [Unknown]
